FAERS Safety Report 17574971 (Version 1)
Quarter: 2020Q1

REPORT INFORMATION
  Report Type: Spontaneous
  Country: FR (occurrence: FR)
  Receive Date: 20200324
  Receipt Date: 20200324
  Transmission Date: 20200409
  Serious: Yes (Hospitalization)
  Sender: FDA-Public Use
  Company Number: FR-TAKEDA-2020TUS015395

PATIENT
  Age: 61 Year
  Sex: Female
  Weight: 78.4 kg

DRUGS (4)
  1. BRINTELLIX [Suspect]
     Active Substance: VORTIOXETINE HYDROBROMIDE
     Indication: POISONING DELIBERATE
     Dosage: UNK
     Route: 048
     Dates: start: 20200122
  2. PRAZEPAM [Suspect]
     Active Substance: PRAZEPAM
     Indication: POISONING DELIBERATE
     Dosage: UNK
     Route: 048
     Dates: start: 20200122
  3. ALCOOL [Concomitant]
     Active Substance: ALCOHOL
     Indication: POISONING DELIBERATE
     Dosage: UNK
     Route: 048
     Dates: start: 20200122
  4. IMOVANE [Suspect]
     Active Substance: ZOPICLONE
     Indication: POISONING DELIBERATE
     Dosage: UNK
     Route: 048
     Dates: start: 20200122

REACTIONS (3)
  - Intentional overdose [Recovered/Resolved]
  - Somnolence [Recovered/Resolved]
  - Mydriasis [Recovered/Resolved]

NARRATIVE: CASE EVENT DATE: 20200122
